FAERS Safety Report 9063062 (Version 1)
Quarter: 2013Q1

REPORT INFORMATION
  Report Type: Report from Study
  Country: US (occurrence: US)
  Receive Date: 20130129
  Receipt Date: 20130129
  Transmission Date: 20140127
  Serious: No
  Sender: FDA-Public Use
  Company Number: US-ABBOTT-12P-163-0950304-00

PATIENT
  Age: 31 Year
  Sex: Male
  Weight: 65.83 kg

DRUGS (1)
  1. HUMIRA 40 MG/0.8 ML PEN [Suspect]
     Indication: RHEUMATOID ARTHRITIS
     Route: 058
     Dates: start: 201005

REACTIONS (4)
  - Joint swelling [Recovering/Resolving]
  - Local swelling [Recovering/Resolving]
  - Local swelling [Recovering/Resolving]
  - Joint swelling [Recovering/Resolving]
